FAERS Safety Report 23742492 (Version 1)
Quarter: 2024Q2

REPORT INFORMATION
  Report Type: Spontaneous
  Country: US (occurrence: None)
  Receive Date: 20240412
  Receipt Date: 20240412
  Transmission Date: 20240715
  Serious: Yes (Death)
  Sender: FDA-Public Use
  Company Number: None

PATIENT
  Age: 81 Year
  Sex: 0
  Weight: 63.54 kg

DRUGS (11)
  1. REVLIMID [Suspect]
     Active Substance: LENALIDOMIDE
     Indication: Diffuse large B-cell lymphoma
     Dosage: FREQUENCY : DAILY;?
     Route: 048
     Dates: start: 20180727, end: 20240411
  2. lidocaine-prilocaine 2.5 %-2.5 % topical cream [Concomitant]
  3. ALLOPURINOL [Concomitant]
  4. ECOTRIN [Concomitant]
  5. CALCIUM [Concomitant]
     Active Substance: CALCIUM
  6. FOSAMAX [Concomitant]
     Active Substance: ALENDRONATE SODIUM
  7. COQ-10 [Concomitant]
  8. MAGNESIUM [Concomitant]
  9. VITAMIN D3 [Concomitant]
  10. verapamil ER (SR) [Concomitant]
  11. PRAVASTATIN [Concomitant]

REACTIONS (1)
  - Death [None]

NARRATIVE: CASE EVENT DATE: 20240411
